FAERS Safety Report 23813894 (Version 2)
Quarter: 2024Q2

REPORT INFORMATION
  Report Type: Spontaneous
  Country: US (occurrence: None)
  Receive Date: 20240503
  Receipt Date: 20240508
  Transmission Date: 20240716
  Serious: Yes (Other)
  Sender: FDA-Public Use
  Company Number: 2024A100691

PATIENT
  Sex: Female

DRUGS (1)
  1. SYMBICORT [Suspect]
     Active Substance: BUDESONIDE\FORMOTEROL FUMARATE DIHYDRATE
     Dosage: 160 UG TWO TIMES A DAY
     Route: 055
     Dates: start: 1994

REACTIONS (9)
  - Cerebrovascular accident [Unknown]
  - Dysarthria [Unknown]
  - Blindness [Unknown]
  - Memory impairment [Unknown]
  - Gait disturbance [Unknown]
  - Vision blurred [Unknown]
  - Product use issue [Unknown]
  - Device delivery system issue [Unknown]
  - Device malfunction [Unknown]
